FAERS Safety Report 25593122 (Version 4)
Quarter: 2025Q4

REPORT INFORMATION
  Report Type: Report from Study
  Country: US (occurrence: US)
  Receive Date: 20250722
  Receipt Date: 20251229
  Transmission Date: 20260118
  Serious: Yes (Hospitalization, Other)
  Sender: MALLINCKRODT
  Company Number: US-MALLINCKRODT-MNK202504318

PATIENT
  Age: 65 Year
  Sex: Female

DRUGS (2)
  1. CORTICOTROPIN [Suspect]
     Active Substance: CORTICOTROPIN
     Indication: Sarcoidosis
     Dosage: 40 UNITS
  2. TRAZODONE [Concomitant]
     Active Substance: TRAZODONE HYDROCHLORIDE
     Dosage: UNKNOWN

REACTIONS (11)
  - Vertigo [Unknown]
  - Knee operation [Unknown]
  - Fall [Unknown]
  - Humerus fracture [Not Recovered/Not Resolved]
  - Anxiety disorder [Unknown]
  - Pruritus [Unknown]
  - Hypoaesthesia [Unknown]
  - Musculoskeletal stiffness [Unknown]
  - Rash [Unknown]
  - Fatigue [Unknown]
  - Expired product administered [Unknown]

NARRATIVE: CASE EVENT DATE: 20250101
